FAERS Safety Report 5021306-1 (Version None)
Quarter: 2006Q2

REPORT INFORMATION
  Report Type: 
  Country: None (occurrence: None)
  Receive Date: 20060608
  Receipt Date: 20060601
  Transmission Date: 20061013
  Serious: Yes (Hospitalization)
  Sender: FDA-Public Use
  Company Number: J200601489

PATIENT
  Age: 53 Year
  Sex: Female

DRUGS (5)
  1. SAWACILLIN [Suspect]
     Indication: DRUG USE FOR UNKNOWN INDICATION
     Dosage: 1.5G PER DAY
     Route: 048
     Dates: start: 20060417, end: 20060420
  2. PONTAL [Concomitant]
     Indication: DRUG USE FOR UNKNOWN INDICATION
     Route: 048
     Dates: start: 20060417, end: 20060420
  3. LYSOZYME HYDROCHLORIDE [Concomitant]
     Indication: DRUG USE FOR UNKNOWN INDICATION
     Route: 048
     Dates: start: 20060417, end: 20060420
  4. ALESION [Concomitant]
     Indication: DRUG USE FOR UNKNOWN INDICATION
     Route: 048
  5. NIPOLAZIN [Concomitant]
     Indication: DRUG USE FOR UNKNOWN INDICATION
     Route: 048

REACTIONS (1)
  - EOSINOPHILIC PNEUMONIA [None]
